FAERS Safety Report 20974695 (Version 2)
Quarter: 2022Q3

REPORT INFORMATION
  Report Type: Report from Study
  Country: BD (occurrence: BD)
  Receive Date: 20220617
  Receipt Date: 20220623
  Transmission Date: 20221026
  Serious: Yes (Death, Hospitalization)
  Sender: FDA-Public Use
  Company Number: BD-NOVARTISPH-NVSC2022BD139090

PATIENT
  Age: 83 Year
  Sex: Male
  Weight: 50 kg

DRUGS (1)
  1. ZOMETA [Suspect]
     Active Substance: ZOLEDRONIC ACID
     Indication: Prostate cancer metastatic
     Dosage: 4 MG, ONCE/SINGLE (EVERY 4 WEEKS)
     Route: 042
     Dates: start: 20220421

REACTIONS (2)
  - Prostate cancer metastatic [Fatal]
  - Malignant neoplasm progression [Fatal]
